FAERS Safety Report 5602513-3 (Version None)
Quarter: 2008Q1

REPORT INFORMATION
  Report Type: 
  Country: None (occurrence: None)
  Receive Date: 20080125
  Receipt Date: 20080123
  Transmission Date: 20080703
  Serious: Yes (Other)
  Sender: FDA-Public Use
  Company Number: B0495760A

PATIENT
  Age: 34 Year
  Sex: Male

DRUGS (4)
  1. PAXIL [Suspect]
     Indication: AFFECTIVE DISORDER
     Dosage: 20MG PER DAY
     Route: 048
     Dates: start: 20061222
  2. TOLEDOMIN [Suspect]
     Indication: DRUG USE FOR UNKNOWN INDICATION
     Dosage: 50MG PER DAY
     Route: 048
     Dates: start: 20061013
  3. MYSLEE [Concomitant]
     Dosage: 10MG PER DAY
     Route: 048
     Dates: start: 20061006
  4. SEPAZON [Concomitant]
     Dosage: 2MG PER DAY
     Route: 048
     Dates: start: 20061125

REACTIONS (1)
  - CONVULSION [None]
